FAERS Safety Report 10434837 (Version 1)
Quarter: 2014Q3

REPORT INFORMATION
  Report Type: Spontaneous
  Country: US (occurrence: None)
  Receive Date: 20140815
  Receipt Date: 20140815
  Transmission Date: 20150326
  Serious: No
  Sender: FDA-Public Use
  Company Number: 2014TUS004481

PATIENT
  Age: 55 Year
  Sex: Male
  Weight: 72.6 kg

DRUGS (2)
  1. LIOTHYRONINE (LIOTHYRONINE) [Concomitant]
  2. BRINTELLIX [Suspect]
     Active Substance: VORTIOXETINE HYDROBROMIDE
     Indication: DEPRESSION
     Route: 048
     Dates: start: 20140101, end: 20140114

REACTIONS (1)
  - Drug ineffective [None]
